FAERS Safety Report 4391957-6 (Version None)
Quarter: 2004Q3

REPORT INFORMATION
  Report Type: 
  Country: None (occurrence: None)
  Receive Date: 20040701
  Receipt Date: 20040615
  Transmission Date: 20050211
  Serious: Yes (Other)
  Sender: FDA-Public Use
  Company Number: USA040258150

PATIENT
  Age: 74 Year
  Sex: Female
  Weight: 64 kg

DRUGS (8)
  1. FORTEO [Suspect]
     Indication: OSTEOPOROSIS
     Dosage: 20 U/L DAY
     Dates: start: 20040105, end: 20040131
  2. EVISTA [Suspect]
     Dosage: 60 MG/1 DAY
  3. PAXIL [Concomitant]
  4. PLAVIX [Concomitant]
  5. NEXIUM [Concomitant]
  6. QUININE SULFATE [Concomitant]
  7. NITROSTAT [Concomitant]
  8. BETOPTIC (BEXTAXOLOL HYDROCHLORIDE) [Concomitant]

REACTIONS (8)
  - CONCUSSION [None]
  - FACIAL BONES FRACTURE [None]
  - FALL [None]
  - INJECTION SITE HAEMORRHAGE [None]
  - MENTAL DISORDER [None]
  - MUSCULOSKELETAL DISCOMFORT [None]
  - NIGHT CRAMPS [None]
  - PHARMACEUTICAL PRODUCT COMPLAINT [None]
